FAERS Safety Report 8506295-7 (Version None)
Quarter: 2012Q3

REPORT INFORMATION
  Report Type: 
  Country: None (occurrence: None)
  Receive Date: 20120712
  Receipt Date: 20120710
  Transmission Date: 20120928
  Serious: Yes (Hospitalization)
  Sender: FDA-Public Use
  Company Number: DE-ROCHE-1086025

PATIENT
  Age: 87 Year
  Sex: Female
  Weight: 99.2 kg

DRUGS (8)
  1. LOSARTAN POTASSIUM [Concomitant]
  2. RANIBIZUMAB [Suspect]
     Indication: AGE-RELATED MACULAR DEGENERATION
     Route: 050
     Dates: start: 20120319
  3. RANIBIZUMAB [Suspect]
     Route: 050
     Dates: start: 20120514, end: 20120514
  4. DIGITOXIN TAB [Concomitant]
  5. MARCUMAR [Concomitant]
     Dates: end: 20120515
  6. METOPROLOL TARTRATE [Concomitant]
  7. RANIBIZUMAB [Suspect]
     Route: 050
     Dates: start: 20120416
  8. SIMVASTATIN [Concomitant]

REACTIONS (3)
  - CEREBROVASCULAR ACCIDENT [None]
  - INTESTINAL HAEMORRHAGE [None]
  - GASTROINTESTINAL CARCINOMA [None]
